FAERS Safety Report 6596722-7 (Version None)
Quarter: 2010Q1

REPORT INFORMATION
  Report Type: 
  Country: None (occurrence: None)
  Receive Date: 20100212
  Receipt Date: 20100201
  Transmission Date: 20100710
  Serious: Yes (Other)
  Sender: FDA-Public Use
  Company Number: 006049

PATIENT
  Sex: Male

DRUGS (15)
  1. KEPPRA [Suspect]
     Indication: CEREBRAL ATROPHY
     Dates: start: 20081201, end: 20090101
  2. NEURONTIN [Suspect]
     Indication: CEREBRAL ATROPHY
     Dosage: 900 MCG, 2700 MG QD
  3. DILANTIN [Suspect]
     Indication: CEREBRAL ATROPHY
     Dates: start: 20081201, end: 20090101
  4. SERTRALINE HCL [Suspect]
  5. EFFEXOR XR [Suspect]
     Indication: DEPRESSION
     Dates: start: 20070101
  6. DEPAKOTE [Concomitant]
  7. HEPARIN-FRACTION [Concomitant]
  8. LOVENOX [Concomitant]
  9. LISINOPRIL [Concomitant]
  10. SIMVASTATIN [Concomitant]
  11. COLLACE [Concomitant]
  12. BACLOFEN [Concomitant]
  13. TEMAZEPAM [Concomitant]
  14. LACTULOSE [Concomitant]
  15. BECONASE AQUA [Concomitant]

REACTIONS (6)
  - CEREBRAL ARTERIOVENOUS MALFORMATION HAEMORRHAGIC [None]
  - CEREBRAL ATROPHY [None]
  - CONVULSION [None]
  - HYPERSENSITIVITY [None]
  - OVERDOSE [None]
  - POSTICTAL STATE [None]
